FAERS Safety Report 6170839-3 (Version None)
Quarter: 2009Q2

REPORT INFORMATION
  Report Type: 
  Country: None (occurrence: None)
  Receive Date: 20090427
  Receipt Date: 20090413
  Transmission Date: 20091009
  Serious: Yes (Other)
  Sender: FDA-Public Use
  Company Number: TRP_06166_2009

PATIENT
  Age: 51 Year
  Sex: Male

DRUGS (2)
  1. RIBASPHERE [Suspect]
     Indication: HEPATITIS C
     Dosage: (DF)
     Dates: start: 20090222
  2. PEG-INTRON [Suspect]
     Indication: HEPATITIS C
     Dosage: (DF SUBCUTANEOUS)
     Route: 058
     Dates: start: 20090222

REACTIONS (5)
  - ABDOMINAL PAIN UPPER [None]
  - AGEUSIA [None]
  - ANOREXIA [None]
  - DEHYDRATION [None]
  - VOMITING [None]
